FAERS Safety Report 12544292 (Version 1)
Quarter: 2016Q3

REPORT INFORMATION
  Report Type: Spontaneous
  Country: US (occurrence: None)
  Receive Date: 20160708
  Receipt Date: 20160708
  Transmission Date: 20161109
  Serious: No
  Sender: FDA-Public Use
  Company Number: None

PATIENT
  Age: 55 Year
  Sex: Female

DRUGS (4)
  1. SYNTHROID [Concomitant]
     Active Substance: LEVOTHYROXINE SODIUM
  2. SPRYCEL [Suspect]
     Active Substance: DASATINIB
     Indication: CHRONIC MYELOID LEUKAEMIA
     Route: 048
     Dates: start: 20160503
  3. JAKAFI [Concomitant]
     Active Substance: RUXOLITINIB
  4. ADVIL [Concomitant]
     Active Substance: IBUPROFEN

REACTIONS (4)
  - Nausea [None]
  - Bone pain [None]
  - Vomiting [None]
  - Muscle spasms [None]

NARRATIVE: CASE EVENT DATE: 2016
